FAERS Safety Report 14443763 (Version 5)
Quarter: 2019Q3

REPORT INFORMATION
  Report Type: Report from Study
  Country: US (occurrence: US)
  Receive Date: 20180125
  Receipt Date: 20190904
  Transmission Date: 20191004
  Serious: Yes (Hospitalization, Other)
  Sender: FDA-Public Use
  Company Number: US-ACTELION-A-NJ2018-166313

PATIENT
  Sex: Female
  Weight: 56.69 kg

DRUGS (2)
  1. REVATIO [Concomitant]
     Active Substance: SILDENAFIL CITRATE
  2. TRACLEER [Suspect]
     Active Substance: BOSENTAN
     Indication: PULMONARY HYPERTENSION
     Dosage: 125 MG, BID
     Route: 048

REACTIONS (11)
  - Influenza [Unknown]
  - Cerebrovascular accident [Unknown]
  - Joint injury [Unknown]
  - Syncope [Unknown]
  - Neoplasm malignant [Unknown]
  - Fall [Unknown]
  - Urinary tract infection [Unknown]
  - Blood potassium decreased [Unknown]
  - Gastrointestinal infection [Unknown]
  - Calcium deficiency [Unknown]
  - Hip fracture [Unknown]
